FAERS Safety Report 5731424-8 (Version None)
Quarter: 2008Q2

REPORT INFORMATION
  Report Type: 
  Country: None (occurrence: None)
  Receive Date: 20080508
  Receipt Date: 20080430
  Transmission Date: 20081010
  Serious: Yes (Hospitalization)
  Sender: FDA-Public Use
  Company Number: FR-ELI_LILLY_AND_COMPANY-FR200804007313

PATIENT
  Sex: Male

DRUGS (2)
  1. ZYPREXA [Suspect]
     Indication: BRIEF PSYCHOTIC DISORDER WITH MARKED STRESSORS
     Dosage: 7.5 MG, DAILY (1/D)
     Route: 048
  2. NICOPATCH [Concomitant]
     Indication: TOBACCO WITHDRAWAL SYMPTOMS
     Dosage: 21 MG, DAILY (1/D)
     Route: 062
     Dates: start: 20080103

REACTIONS (2)
  - ANGINA PECTORIS [None]
  - ARTERIOSPASM CORONARY [None]
